FAERS Safety Report 15075060 (Version 2)
Quarter: 2023Q4

REPORT INFORMATION
  Report Type: Spontaneous
  Country: US (occurrence: US)
  Receive Date: 20180627
  Receipt Date: 20231109
  Transmission Date: 20240110
  Serious: Yes (Other)
  Sender: FDA-Public Use
  Company Number: US-SAOL THERAPEUTICS-2017SAO01744

PATIENT
  Age: 56 Year
  Sex: Male
  Weight: 91 kg

DRUGS (13)
  1. BACLOFEN [Suspect]
     Active Substance: BACLOFEN
     Dosage: 133 ?G, \DAY
     Route: 037
  2. DILAUDID [Suspect]
     Active Substance: HYDROMORPHONE HYDROCHLORIDE
     Dosage: 710 ?G, \DAY
     Route: 037
  3. OXYCODONE [Concomitant]
     Active Substance: OXYCODONE
  4. BACLOFEN [Concomitant]
     Active Substance: BACLOFEN
     Route: 048
  5. KLONOPIN [Concomitant]
     Active Substance: CLONAZEPAM
  6. LUNESTA [Concomitant]
     Active Substance: ESZOPICLONE
  7. FLONASE [Concomitant]
     Active Substance: FLUTICASONE PROPIONATE
  8. NEURONTIN [Concomitant]
     Active Substance: GABAPENTIN
  9. ZESTRIL [Concomitant]
     Active Substance: LISINOPRIL
  10. REMERON [Concomitant]
     Active Substance: MIRTAZAPINE
  11. PRILOSEC [Concomitant]
     Active Substance: OMEPRAZOLE MAGNESIUM
  12. ZANAFLEX [Concomitant]
     Active Substance: TIZANIDINE HYDROCHLORIDE
  13. AMBIEN [Concomitant]
     Active Substance: ZOLPIDEM TARTRATE

REACTIONS (4)
  - Drug withdrawal syndrome [Recovered/Resolved]
  - Yawning [Recovered/Resolved]
  - Device malfunction [Recovered/Resolved]
  - Complication associated with device [Unknown]

NARRATIVE: CASE EVENT DATE: 20171102
